FAERS Safety Report 16633928 (Version 1)
Quarter: 2019Q3

REPORT INFORMATION
  Report Type: Spontaneous
  Country: US (occurrence: US)
  Receive Date: 20190725
  Receipt Date: 20190725
  Transmission Date: 20191004
  Serious: Yes (Other)
  Sender: FDA-Public Use
  Company Number: US-DERMIRA, INC.-US-2019DER000277

PATIENT

DRUGS (2)
  1. QBREXZA [Suspect]
     Active Substance: GLYCOPYRRONIUM TOSYLATE
     Indication: HYPERHIDROSIS
     Dosage: UNK
     Route: 061
     Dates: start: 20190417, end: 20190418
  2. LIVALO [Concomitant]
     Active Substance: PITAVASTATIN CALCIUM
     Indication: BLOOD CHOLESTEROL
     Dosage: 1 MG, QD
     Route: 048
     Dates: start: 2018

REACTIONS (10)
  - Urinary retention [Recovered/Resolved]
  - Headache [Recovering/Resolving]
  - Economic problem [Unknown]
  - Abdominal pain lower [Recovered/Resolved]
  - Blood pressure increased [Recovered/Resolved]
  - Post procedural complication [Recovered/Resolved]
  - Stress [Unknown]
  - Genitourinary symptom [Recovered/Resolved]
  - Off label use [Recovered/Resolved]
  - White blood cell count increased [Unknown]

NARRATIVE: CASE EVENT DATE: 201904
